FAERS Safety Report 4844841-5 (Version None)
Quarter: 2005Q4

REPORT INFORMATION
  Report Type: 
  Country: None (occurrence: None)
  Receive Date: 20051205
  Receipt Date: 20051122
  Transmission Date: 20060501
  Serious: Yes (Hospitalization)
  Sender: FDA-Public Use
  Company Number: IT-JNJFOC-20051200365

PATIENT
  Age: 64 Year
  Sex: Female

DRUGS (3)
  1. CONTRAMAL [Suspect]
     Indication: SHOULDER PAIN
     Route: 048
  2. APROVAL [Concomitant]
     Route: 065
  3. EUTIROX [Concomitant]
     Route: 065

REACTIONS (3)
  - RETCHING [None]
  - SYNCOPE [None]
  - URINARY INCONTINENCE [None]
